FAERS Safety Report 21435765 (Version 3)
Quarter: 2022Q4

REPORT INFORMATION
  Report Type: Spontaneous
  Country: DE (occurrence: DE)
  Receive Date: 20221010
  Receipt Date: 20221014
  Transmission Date: 20230113
  Serious: Yes (Life-Threatening, Hospitalization, Other)
  Sender: FDA-Public Use
  Company Number: DE-TAKEDA-2022TUS057821

PATIENT
  Age: 34 Year
  Sex: Female
  Weight: 73 kg

DRUGS (4)
  1. PANTOPRAZOLE [Suspect]
     Active Substance: PANTOPRAZOLE
     Indication: Product used for unknown indication
     Dosage: UNK
     Route: 065
  2. COMIRNATY [Suspect]
     Active Substance: TOZINAMERAN
     Indication: Product used for unknown indication
     Dosage: UNK
     Route: 030
     Dates: start: 20210430
  3. TOZINAMERAN [Suspect]
     Active Substance: TOZINAMERAN
     Indication: COVID-19 immunisation
     Dosage: DOSE NUMBER UNKNOWN, SINGLE, TOTAL
     Route: 030
     Dates: start: 20210430, end: 20210430
  4. BUDESONIDE\FORMOTEROL [Concomitant]
     Active Substance: BUDESONIDE\FORMOTEROL
     Dosage: UNK UNK, QD
     Route: 065

REACTIONS (5)
  - Anaphylactic reaction [Recovering/Resolving]
  - Palpitations [Unknown]
  - Anaesthesia oral [Unknown]
  - Cough [Unknown]
  - Pruritus [Unknown]

NARRATIVE: CASE EVENT DATE: 20210430
